FAERS Safety Report 6758842-3 (Version None)
Quarter: 2010Q2

REPORT INFORMATION
  Report Type: 
  Country: None (occurrence: None)
  Receive Date: 20100603
  Receipt Date: 20100520
  Transmission Date: 20101027
  Serious: Yes (Other)
  Sender: FDA-Public Use
  Company Number: 012547

PATIENT

DRUGS (1)
  1. MOEXIPRIL HYDROCHLORIDE [Suspect]
     Indication: HYPERTENSION
     Dosage: (15 MG QD)

REACTIONS (1)
  - CHOLECYSTITIS [None]
